FAERS Safety Report 8473190-1 (Version None)
Quarter: 2012Q2

REPORT INFORMATION
  Report Type: 
  Country: None (occurrence: None)
  Receive Date: 20120627
  Receipt Date: 20120618
  Transmission Date: 20120825
  Serious: Yes (Death)
  Sender: FDA-Public Use
  Company Number: SV-PFIZER INC-2011041462

PATIENT
  Age: 76 Year
  Sex: Female

DRUGS (1)
  1. PANTOPRAZOLE [Suspect]
     Dosage: 40 MG, UNK
     Dates: end: 20110213

REACTIONS (1)
  - DEATH [None]
